FAERS Safety Report 4387467-2 (Version None)
Quarter: 2004Q2

REPORT INFORMATION
  Report Type: 
  Country: None (occurrence: None)
  Receive Date: 20040630
  Receipt Date: 20040412
  Transmission Date: 20050107
  Serious: No
  Sender: FDA-Public Use
  Company Number: US-BRISTOL-MYERS SQUIBB COMPANY-12557732

PATIENT
  Age: 46 Year
  Sex: Male
  Weight: 113 kg

DRUGS (2)
  1. REYATAZ [Suspect]
     Indication: HIV INFECTION
     Route: 048
     Dates: start: 20040402, end: 20040407
  2. RITUXAN [Concomitant]

REACTIONS (2)
  - FATIGUE [None]
  - JAUNDICE [None]
